FAERS Safety Report 5350462-0 (Version None)
Quarter: 2007Q2

REPORT INFORMATION
  Report Type: 
  Country: None (occurrence: None)
  Receive Date: 20070608
  Receipt Date: 20070601
  Transmission Date: 20071010
  Serious: Yes (Other)
  Sender: FDA-Public Use
  Company Number: PHEH2007US08188

PATIENT
  Sex: Female

DRUGS (2)
  1. AREDIA [Suspect]
     Indication: RESORPTION BONE INCREASED
  2. ZOMETA [Suspect]
     Indication: RESORPTION BONE INCREASED

REACTIONS (4)
  - ANXIETY [None]
  - OSTEONECROSIS [None]
  - PAIN [None]
  - PHYSICAL DISABILITY [None]
